FAERS Safety Report 6923865-8 (Version None)
Quarter: 2010Q3

REPORT INFORMATION
  Report Type: 
  Country: None (occurrence: None)
  Receive Date: 20100813
  Receipt Date: 20100114
  Transmission Date: 20110219
  Serious: No
  Sender: FDA-Public Use
  Company Number: US-BRISTOL-MYERS SQUIBB COMPANY-14928147

PATIENT
  Sex: Male

DRUGS (2)
  1. REYATAZ [Suspect]
     Dosage: DOSE INCREASED TO TWICE DAILY
  2. RITONAVIR [Suspect]
     Dosage: INCREASED THE DOSE TO TWICE DAILY

REACTIONS (1)
  - MEDICATION ERROR [None]
